FAERS Safety Report 17170513 (Version 1)
Quarter: 2019Q4

REPORT INFORMATION
  Report Type: Report from Study
  Country: IE (occurrence: IE)
  Receive Date: 20191218
  Receipt Date: 20191218
  Transmission Date: 20200122
  Serious: Yes (Other)
  Sender: FDA-Public Use
  Company Number: IE-JNJFOC-20191213643

PATIENT
  Sex: Male

DRUGS (11)
  1. FUNGASIL                           /00992601/ [Concomitant]
     Route: 065
  2. MIRAP                              /01293201/ [Concomitant]
     Route: 065
  3. EPILIM [Concomitant]
     Active Substance: VALPROATE SODIUM
  4. FOLIC ACID. [Concomitant]
     Active Substance: FOLIC ACID
     Route: 065
  5. STELARA [Suspect]
     Active Substance: USTEKINUMAB
     Indication: PSORIASIS
     Route: 058
     Dates: start: 20190920
  6. GEROQUEL [Concomitant]
     Route: 065
  7. QUETIAPINE. [Concomitant]
     Active Substance: QUETIAPINE
     Route: 065
  8. QUETEX [Concomitant]
     Active Substance: QUETIAPINE FUMARATE
     Route: 065
  9. DALMAPAM [Concomitant]
  10. LARIG [Concomitant]
     Route: 065
  11. OMEPRAZOLE. [Concomitant]
     Active Substance: OMEPRAZOLE
     Route: 065

REACTIONS (1)
  - Hernia [Not Recovered/Not Resolved]
